FAERS Safety Report 7634939-0 (Version None)
Quarter: 2011Q3

REPORT INFORMATION
  Report Type: 
  Country: None (occurrence: None)
  Receive Date: 20110726
  Receipt Date: 20110715
  Transmission Date: 20111222
  Serious: Yes (Death, Hospitalization, Other)
  Sender: FDA-Public Use
  Company Number: US-BAYER-201038758NA

PATIENT
  Age: 49 Year
  Sex: Female
  Weight: 63.492 kg

DRUGS (7)
  1. ASPIRIN [Concomitant]
  2. YAZ [Suspect]
     Indication: CONTRACEPTION
     Dosage: UNK
     Route: 048
     Dates: start: 20080401, end: 20081201
  3. PLAVIX [Concomitant]
  4. LOVENOX [Concomitant]
  5. AGGRASTAT [Concomitant]
  6. BLOOD PRESSURE MEDICATIONS [Concomitant]
     Indication: HYPERTENSION
     Dosage: UNK
     Dates: start: 20080101, end: 20080101
  7. LOPRESSOR [Concomitant]

REACTIONS (2)
  - MYOCARDIAL INFARCTION [None]
  - GALLBLADDER INJURY [None]
